FAERS Safety Report 20332804 (Version 9)
Quarter: 2025Q2

REPORT INFORMATION
  Report Type: Report from Study
  Country: FR (occurrence: FR)
  Receive Date: 20220113
  Receipt Date: 20250627
  Transmission Date: 20250716
  Serious: Yes (Hospitalization, Other)
  Sender: TAKEDA
  Company Number: FR-TEVA-2020-FR-1512896

PATIENT
  Age: 15 Year
  Sex: Female

DRUGS (44)
  1. HYDROCORTISONE [Suspect]
     Active Substance: HYDROCORTISONE
     Indication: Acute myeloid leukaemia
  2. METHOTREXATE [Suspect]
     Active Substance: METHOTREXATE
     Indication: Acute myeloid leukaemia
  3. DEXAMETHASONE [Suspect]
     Active Substance: DEXAMETHASONE
     Indication: Product used for unknown indication
  4. ICLUSIG [Suspect]
     Active Substance: PONATINIB HYDROCHLORIDE
     Indication: Acute myeloid leukaemia
     Dosage: 45 MILLIGRAM, QD
  5. RITUXAN [Suspect]
     Active Substance: RITUXIMAB
     Indication: Bone marrow conditioning regimen
  6. RITUXAN [Suspect]
     Active Substance: RITUXIMAB
     Indication: Drug therapy
  7. RITUXAN [Suspect]
     Active Substance: RITUXIMAB
     Indication: Alloimmunisation
  8. RITUXIMAB [Suspect]
     Active Substance: RITUXIMAB
     Indication: Bone marrow conditioning regimen
  9. RITUXIMAB [Suspect]
     Active Substance: RITUXIMAB
     Indication: Alloimmunisation
  10. CYTARABINE [Suspect]
     Active Substance: CYTARABINE
     Indication: Acute myeloid leukaemia
  11. CYTARABINE [Suspect]
     Active Substance: CYTARABINE
     Dosage: UNK, QD
  12. CYTARABINE [Suspect]
     Active Substance: CYTARABINE
     Dosage: UNK UNK, Q12H
  13. FLUDARABINE [Suspect]
     Active Substance: FLUDARABINE PHOSPHATE
     Indication: Drug therapy
     Dosage: UNK
  14. FLUDARABINE [Suspect]
     Active Substance: FLUDARABINE PHOSPHATE
     Indication: Acute myeloid leukaemia refractory
  15. MITOXANTRONE [Suspect]
     Active Substance: MITOXANTRONE HYDROCHLORIDE
     Indication: Acute myeloid leukaemia
  16. GEMTUZUMAB OZOGAMICIN [Suspect]
     Active Substance: GEMTUZUMAB OZOGAMICIN
     Indication: Acute myeloid leukaemia refractory
     Dosage: UNK
  17. CYCLOPHOSPHAMIDE [Suspect]
     Active Substance: CYCLOPHOSPHAMIDE
     Indication: Drug therapy
  18. CYCLOPHOSPHAMIDE [Suspect]
     Active Substance: CYCLOPHOSPHAMIDE
     Indication: Bone marrow conditioning regimen
  19. AMSACRINE [Suspect]
     Active Substance: AMSACRINE
     Indication: Acute myeloid leukaemia
     Dosage: UNK
  20. DEFITELIO [Suspect]
     Active Substance: DEFIBROTIDE SODIUM
     Indication: Prophylaxis
  21. DEFITELIO [Suspect]
     Active Substance: DEFIBROTIDE SODIUM
     Indication: Venoocclusive liver disease
  22. URSODIOL [Concomitant]
     Active Substance: URSODIOL
     Indication: Prophylaxis
  23. URSODIOL [Concomitant]
     Active Substance: URSODIOL
     Indication: Stem cell transplant
  24. URSODIOL [Concomitant]
     Active Substance: URSODIOL
     Indication: Venoocclusive liver disease
  25. FLUDARABINE PHOSPHATE [Concomitant]
     Active Substance: FLUDARABINE PHOSPHATE
     Indication: Acute myeloid leukaemia
     Dosage: UNK
  26. Clofarabin alvogen [Concomitant]
     Indication: Acute myeloid leukaemia
     Dosage: UNK
  27. Clofarabin alvogen [Concomitant]
  28. ONDANSETRON [Concomitant]
     Active Substance: ONDANSETRON
     Indication: Stem cell transplant
     Dosage: 8 MILLIGRAM, BID
     Dates: start: 20141110
  29. ONDANSETRON [Concomitant]
     Active Substance: ONDANSETRON
     Dosage: 16 MILLIGRAM, QD
  30. VALACYCLOVIR HYDROCHLORIDE [Concomitant]
     Active Substance: VALACYCLOVIR HYDROCHLORIDE
     Indication: Stem cell transplant
     Dosage: 500 MILLIGRAM
     Dates: start: 20141110
  31. VALACYCLOVIR HYDROCHLORIDE [Concomitant]
     Active Substance: VALACYCLOVIR HYDROCHLORIDE
     Dosage: 1000 MILLIGRAM
  32. METHYLPREDNISOLONE [Concomitant]
     Active Substance: METHYLPREDNISOLONE
     Indication: Stem cell transplant
     Dosage: 30 MILLIGRAM
     Dates: start: 20141128
  33. METHYLPREDNISOLONE [Concomitant]
     Active Substance: METHYLPREDNISOLONE
     Dosage: 30 MILLIGRAM
  34. DAUNORUBICIN [Concomitant]
     Active Substance: DAUNORUBICIN
     Indication: Acute myeloid leukaemia
     Dosage: UNK
  35. FLUCONAZOLE [Concomitant]
     Active Substance: FLUCONAZOLE
     Indication: Stem cell transplant
     Dosage: 400 MILLIGRAM
     Dates: start: 20141125
  36. CYCLOSPORINE [Concomitant]
     Active Substance: CYCLOSPORINE
     Indication: Stem cell transplant
     Dosage: 60 MILLIGRAM
     Dates: start: 20141110
  37. PANTOPRAZOLE [Concomitant]
     Active Substance: PANTOPRAZOLE
     Indication: Stem cell transplant
     Dosage: 40 MILLIGRAM
     Dates: start: 20141110
  38. CELLCEPT [Concomitant]
     Active Substance: MYCOPHENOLATE MOFETIL
     Indication: Stem cell transplant
     Dosage: 1250 MILLIGRAM
     Dates: start: 20141110
  39. CANCIDAS [Concomitant]
     Active Substance: CASPOFUNGIN ACETATE
     Indication: Stem cell transplant
     Dosage: 70 MILLIGRAM
     Dates: start: 20141125
  40. URSODIOL [Concomitant]
     Active Substance: URSODIOL
     Indication: Stem cell transplant
     Dosage: 250 MILLIGRAM
     Dates: start: 20141110
  41. URSODIOL [Concomitant]
     Active Substance: URSODIOL
     Indication: Venoocclusive liver disease
     Dosage: 500 MILLIGRAM
  42. URSODIOL [Concomitant]
     Active Substance: URSODIOL
     Indication: Prophylaxis
  43. URSODIOL [Concomitant]
     Active Substance: URSODIOL
     Indication: Venoocclusive liver disease
  44. DAUNORUBICIN HYDROCHLORIDE [Concomitant]
     Active Substance: DAUNORUBICIN HYDROCHLORIDE
     Indication: Acute myeloid leukaemia
     Dosage: UNK

REACTIONS (10)
  - Myalgia [Unknown]
  - Hypersensitivity [Recovered/Resolved]
  - Thrombocytopenia [Unknown]
  - Febrile neutropenia [Unknown]
  - Sepsis [Unknown]
  - Granulicatella infection [Unknown]
  - Cerebral haemorrhage [Recovered/Resolved]
  - Drug resistance [Unknown]
  - Venoocclusive liver disease [Unknown]
  - Off label use [Unknown]

NARRATIVE: CASE EVENT DATE: 20141120
